FAERS Safety Report 5557039-2 (Version None)
Quarter: 2007Q4

REPORT INFORMATION
  Report Type: 
  Country: None (occurrence: None)
  Receive Date: 20071214
  Receipt Date: 20070920
  Transmission Date: 20080405
  Serious: No
  Sender: FDA-Public Use
  Company Number: US-AMGEN-KDL244182

PATIENT
  Sex: Female

DRUGS (2)
  1. ENBREL [Suspect]
     Indication: RHEUMATOID ARTHRITIS
     Route: 058
     Dates: start: 20040303
  2. PLAQUENIL [Concomitant]
     Route: 048

REACTIONS (3)
  - HYPERTHYROIDISM [None]
  - HYPOTHYROIDISM [None]
  - SINUSITIS [None]
